FAERS Safety Report 5494895-0 (Version None)
Quarter: 2007Q4

REPORT INFORMATION
  Report Type: 
  Country: None (occurrence: None)
  Receive Date: 20071024
  Receipt Date: 20071019
  Transmission Date: 20080405
  Serious: Yes (Other)
  Sender: FDA-Public Use
  Company Number: US-JNJFOC-20071005186

PATIENT
  Sex: Male

DRUGS (2)
  1. NESIRITIDE [Suspect]
     Indication: RENAL FAILURE
     Route: 042
  2. NESIRITIDE [Suspect]
     Indication: CARDIAC FAILURE CONGESTIVE
     Route: 042

REACTIONS (1)
  - LIVER DISORDER [None]
